FAERS Safety Report 10464739 (Version 1)
Quarter: 2014Q3

REPORT INFORMATION
  Report Type: Spontaneous
  Country: FR (occurrence: None)
  Receive Date: 20140917
  Receipt Date: 20140917
  Transmission Date: 20150326
  Serious: Yes (Hospitalization, Other)
  Sender: FDA-Public Use
  Company Number: 2530375

PATIENT
  Sex: Female

DRUGS (3)
  1. 5-FLUOROURACIL [Suspect]
     Active Substance: FLUOROURACIL
     Indication: OVARIAN CANCER
     Route: 041
  2. LEUCOVORIN [Concomitant]
     Active Substance: LEUCOVORIN
  3. OXALIPLATIN. [Suspect]
     Active Substance: OXALIPLATIN
     Indication: OVARIAN CANCER
     Route: 033

REACTIONS (4)
  - Pneumoperitoneum [None]
  - Potentiating drug interaction [None]
  - Bone marrow failure [None]
  - Peritoneal haemorrhage [None]
